FAERS Safety Report 18914691 (Version 1)
Quarter: 2021Q1

REPORT INFORMATION
  Report Type: Spontaneous
  Country: HR (occurrence: HR)
  Receive Date: 20210218
  Receipt Date: 20210218
  Transmission Date: 20210420
  Serious: Yes (Hospitalization)
  Sender: FDA-Public Use
  Company Number: HR-TEVA-2021-HR-1882341

PATIENT
  Age: 55 Year
  Sex: Male

DRUGS (8)
  1. BIPERIDEN [Concomitant]
     Active Substance: BIPERIDEN
     Indication: SCHIZOAFFECTIVE DISORDER
     Dosage: 4 MILLIGRAM DAILY;
     Route: 065
  2. CLOZAPINE. [Suspect]
     Active Substance: CLOZAPINE
     Indication: SCHIZOAFFECTIVE DISORDER
     Dosage: 150 MILLIGRAM DAILY;
     Route: 065
  3. METHOTREXATE. [Concomitant]
     Active Substance: METHOTREXATE
     Indication: RHEUMATOID ARTHRITIS
     Route: 065
  4. LEVOMEPROMAZINE [Concomitant]
     Active Substance: LEVOMEPROMAZINE
     Indication: SCHIZOAFFECTIVE DISORDER
     Dosage: 75 MILLIGRAM DAILY;
     Route: 065
  5. FOLIC ACID. [Concomitant]
     Active Substance: FOLIC ACID
     Indication: RHEUMATOID ARTHRITIS
     Route: 065
  6. CLOZAPINE. [Suspect]
     Active Substance: CLOZAPINE
     Indication: SUICIDE ATTEMPT
     Dosage: 70 TABLETS OF 100MG
     Route: 048
  7. HALOPERIDOL. [Concomitant]
     Active Substance: HALOPERIDOL
     Indication: SCHIZOAFFECTIVE DISORDER
     Dosage: 5 MILLIGRAM DAILY;
     Route: 065
  8. VALPROATE [Concomitant]
     Active Substance: VALPROIC ACID
     Indication: SCHIZOAFFECTIVE DISORDER
     Dosage: 1200 MILLIGRAM DAILY;
     Route: 065

REACTIONS (18)
  - Chorea [Recovered/Resolved]
  - Pseudomonas infection [Recovered/Resolved]
  - Somnolence [Recovered/Resolved]
  - Grimacing [Recovered/Resolved]
  - Blood fibrinogen increased [Recovered/Resolved]
  - Procalcitonin increased [Recovered/Resolved]
  - Leukocytosis [Recovered/Resolved]
  - Suicide attempt [Recovered/Resolved]
  - Confusional state [Recovered/Resolved]
  - Sinus tachycardia [Recovered/Resolved]
  - Intentional overdose [Recovered/Resolved]
  - Toxicity to various agents [Recovered/Resolved]
  - Agitation [Recovered/Resolved]
  - Disorganised speech [Recovered/Resolved]
  - C-reactive protein increased [Recovered/Resolved]
  - Blood creatine phosphokinase increased [Recovered/Resolved]
  - Condition aggravated [Recovered/Resolved]
  - Pneumonia aspiration [Recovered/Resolved]
